FAERS Safety Report 9206070 (Version 2)
Quarter: 2013Q2

REPORT INFORMATION
  Report Type: Spontaneous
  Country: TR (occurrence: TR)
  Receive Date: 20130403
  Receipt Date: 20130422
  Transmission Date: 20140414
  Serious: No
  Sender: FDA-Public Use
  Company Number: TR-AMGEN-TURSP2013021851

PATIENT
  Age: 18 Year
  Sex: Female

DRUGS (3)
  1. ENBREL [Suspect]
     Indication: PSORIATIC ARTHROPATHY
     Dosage: 25 MG, 2X/WEEK
     Route: 058
     Dates: start: 20101105
  2. METHOTREXATE SODIUM [Suspect]
     Dosage: UNK
     Route: 048
     Dates: start: 2007, end: 20130315
  3. DELTACORTRIL                       /00016201/ [Concomitant]
     Dosage: 7.5 MG, 1X/DAY
     Route: 058
     Dates: start: 2003

REACTIONS (3)
  - Abdominal pain [Recovered/Resolved]
  - Diarrhoea [Recovered/Resolved]
  - Nausea [Recovered/Resolved]
